FAERS Safety Report 19078384 (Version 1)
Quarter: 2021Q1

REPORT INFORMATION
  Report Type: Spontaneous
  Country: US (occurrence: US)
  Receive Date: 20210331
  Receipt Date: 20210331
  Transmission Date: 20210420
  Serious: Yes (Other)
  Sender: FDA-Public Use
  Company Number: None

PATIENT
  Age: 41 Year
  Sex: Female
  Weight: 85.5 kg

DRUGS (8)
  1. SINGULAIR [Suspect]
     Active Substance: MONTELUKAST SODIUM
     Indication: HYPERSENSITIVITY
     Dosage: ?          QUANTITY:90 TABLET(S);?
     Route: 048
     Dates: start: 20171001, end: 20210323
  2. ADDERALL XR 20 MG [Concomitant]
  3. SINGULAIR [Concomitant]
     Active Substance: MONTELUKAST SODIUM
  4. SINGULAIR [Suspect]
     Active Substance: MONTELUKAST SODIUM
     Indication: ASTHMA
     Dosage: ?          QUANTITY:90 TABLET(S);?
     Route: 048
     Dates: start: 20171001, end: 20210323
  5. VIT D [Concomitant]
     Active Substance: VITAMIN D NOS
  6. FISH OIL [Concomitant]
     Active Substance: FISH OIL
  7. CALCIUM [Concomitant]
     Active Substance: CALCIUM
  8. GABAPENTIN 300MG [Concomitant]
     Active Substance: GABAPENTIN

REACTIONS (8)
  - Depression [None]
  - Headache [None]
  - Anxiety [None]
  - Disturbance in attention [None]
  - Nightmare [None]
  - Palpitations [None]
  - Insomnia [None]
  - Memory impairment [None]

NARRATIVE: CASE EVENT DATE: 20210104
